FAERS Safety Report 4346585-5 (Version None)
Quarter: 2004Q1

REPORT INFORMATION
  Report Type: 
  Country: None (occurrence: None)
  Receive Date: 20040325
  Receipt Date: 20040223
  Transmission Date: 20041129
  Serious: No
  Sender: FDA-Public Use
  Company Number: USA030536944

PATIENT
  Age: 56 Year
  Sex: Female
  Weight: 52 kg

DRUGS (5)
  1. FORTEO [Suspect]
     Indication: OSTEOPOROSIS
     Dates: start: 20030401, end: 20040216
  2. CLARINEX [Concomitant]
  3. SINGULAIR [Concomitant]
  4. EFFEXOR [Concomitant]
  5. RESTORIL [Concomitant]

REACTIONS (8)
  - BLOOD ALKALINE PHOSPHATASE INCREASED [None]
  - BONE PAIN [None]
  - DEHYDRATION [None]
  - LABORATORY TEST ABNORMAL [None]
  - OEDEMA PERIPHERAL [None]
  - PAIN [None]
  - PLATELET DISORDER [None]
  - RED BLOOD CELL SEDIMENTATION RATE INCREASED [None]
